FAERS Safety Report 6107735-3 (Version None)
Quarter: 2009Q1

REPORT INFORMATION
  Report Type: 
  Country: None (occurrence: None)
  Receive Date: 20090309
  Receipt Date: 20090227
  Transmission Date: 20090719
  Serious: Yes (Hospitalization)
  Sender: FDA-Public Use
  Company Number: A0769368A

PATIENT
  Age: 64 Year
  Sex: Male
  Weight: 100 kg

DRUGS (7)
  1. AVANDIA [Suspect]
     Dosage: 4MG TWICE PER DAY
     Route: 048
     Dates: start: 20050621, end: 20070101
  2. AVANDAMET [Suspect]
     Route: 048
     Dates: start: 20031230, end: 20050701
  3. LIPITOR [Concomitant]
  4. NORVASC [Concomitant]
  5. GLYBURIDE [Concomitant]
  6. METFORMIN [Concomitant]
  7. WATER PILL [Concomitant]

REACTIONS (4)
  - CARDIOVASCULAR DISORDER [None]
  - HIP FRACTURE [None]
  - MYOCARDIAL INFARCTION [None]
  - UPPER LIMB FRACTURE [None]
